FAERS Safety Report 8228178-2 (Version None)
Quarter: 2012Q1

REPORT INFORMATION
  Report Type: 
  Country: None (occurrence: None)
  Receive Date: 20120322
  Receipt Date: 20111209
  Transmission Date: 20120608
  Serious: No
  Sender: FDA-Public Use
  Company Number: US-BRISTOL-MYERS SQUIBB COMPANY-16281925

PATIENT
  Age: 65 Year
  Sex: Female

DRUGS (5)
  1. ONDANSETRON [Concomitant]
  2. POTASSIUM [Concomitant]
  3. ERBITUX [Suspect]
  4. EMEND [Concomitant]
  5. LOVASTATIN [Concomitant]

REACTIONS (3)
  - ALOPECIA [None]
  - PERIPHERAL COLDNESS [None]
  - HYPOAESTHESIA [None]
